FAERS Safety Report 14654322 (Version 2)
Quarter: 2018Q2

REPORT INFORMATION
  Report Type: Spontaneous
  Country: US (occurrence: US)
  Receive Date: 20180319
  Receipt Date: 20180402
  Transmission Date: 20180711
  Serious: Yes (Other)
  Sender: FDA-Public Use
  Company Number: US-BIOGEN-2018BI00541777

PATIENT
  Age: 43 Year
  Sex: Male
  Weight: 90.5 kg

DRUGS (6)
  1. PAROXETINE. [Concomitant]
     Active Substance: PAROXETINE
     Indication: PRODUCT USED FOR UNKNOWN INDICATION
     Route: 048
  2. AVONEX [Suspect]
     Active Substance: INTERFERON BETA-1A
     Indication: MULTIPLE SCLEROSIS
     Dosage: 1/4 DOSE WEEK 1, 1/2 DOSE WEEK 2, 3/4 DOSE WEEK 3, FULL DOSE WEEK 4
     Route: 030
     Dates: start: 20180131, end: 201802
  3. AVONEX [Suspect]
     Active Substance: INTERFERON BETA-1A
     Dosage: 1/4 DOSE WEEK 1, 1/2 DOSE WEEK 2, 3/4 DOSE WEEK 3, FULL DOSE WEEK 4
     Route: 030
  4. ONDANSETRON [Concomitant]
     Active Substance: ONDANSETRON
     Indication: NAUSEA
     Dosage: PRN FOR MAINTENANCE Q6 HOURS
     Route: 048
  5. AVONEX [Suspect]
     Active Substance: INTERFERON BETA-1A
     Dosage: 1/4 DOSE WEEK 1, 1/2 DOSE WEEK 2, 3/4 DOSE WEEK 3, FULL DOSE WEEK 4
     Route: 030
     Dates: end: 201802
  6. AVONEX [Suspect]
     Active Substance: INTERFERON BETA-1A
     Dosage: 1/4 DOSE WEEK 1, 1/2 DOSE WEEK 2, 3/4 DOSE WEEK 3, FULL DOSE WEEK 4
     Route: 030
     Dates: end: 20180305

REACTIONS (1)
  - Seizure [Unknown]

NARRATIVE: CASE EVENT DATE: 201801
